FAERS Safety Report 7131955-2 (Version None)
Quarter: 2010Q4

REPORT INFORMATION
  Report Type: 
  Country: None (occurrence: None)
  Receive Date: 20101124
  Receipt Date: 20101124
  Transmission Date: 20110411
  Serious: Yes (Other)
  Sender: FDA-Public Use
  Company Number: None

PATIENT
  Sex: Female
  Weight: 54.4316 kg

DRUGS (1)
  1. PROMETHAZINE [Suspect]
     Indication: DIZZINESS
     Dosage: 25 MG SINGLE DOSE IM
     Route: 030

REACTIONS (3)
  - DYSPNOEA [None]
  - PRESYNCOPE [None]
  - TREMOR [None]
